FAERS Safety Report 7712466-X (Version None)
Quarter: 2011Q3

REPORT INFORMATION
  Report Type: 
  Country: None (occurrence: None)
  Receive Date: 20110826
  Receipt Date: 20110826
  Transmission Date: 20111222
  Serious: Yes (Other)
  Sender: FDA-Public Use
  Company Number: None

PATIENT
  Age: 53 Year
  Sex: Female
  Weight: 72.574 kg

DRUGS (2)
  1. KLOR-CON [Suspect]
     Indication: PARALYSIS
     Dosage: 40MEQ
     Route: 048
     Dates: start: 20110811, end: 20110820
  2. KLOR-CON [Suspect]
     Indication: HYPOKALAEMIA
     Dosage: 40MEQ
     Route: 048
     Dates: start: 20110811, end: 20110820

REACTIONS (2)
  - DRUG INEFFECTIVE [None]
  - PRODUCT TASTE ABNORMAL [None]
